FAERS Safety Report 5782970-2 (Version None)
Quarter: 2008Q2

REPORT INFORMATION
  Report Type: 
  Country: None (occurrence: None)
  Receive Date: 20080619
  Receipt Date: 20080603
  Transmission Date: 20081010
  Serious: Yes (Other)
  Sender: FDA-Public Use
  Company Number: 8033346

PATIENT
  Age: 27 Year
  Sex: Female

DRUGS (2)
  1. XYZALL	/01530201/ [Suspect]
     Dosage: 5 MG 1/D PO
     Route: 048
  2. MICROVAL [Concomitant]

REACTIONS (3)
  - DRUG EXPOSURE BEFORE PREGNANCY [None]
  - DRUG TOLERANCE DECREASED [None]
  - PREGNANCY [None]
